FAERS Safety Report 9286609 (Version 1)
Quarter: 2013Q2

REPORT INFORMATION
  Report Type: Spontaneous
  Country: BR (occurrence: BR)
  Receive Date: 20130513
  Receipt Date: 20130513
  Transmission Date: 20140414
  Serious: Yes (Life-Threatening)
  Sender: FDA-Public Use
  Company Number: PHHY2013BR046585

PATIENT
  Age: 62 Year
  Sex: Female
  Weight: 60 kg

DRUGS (2)
  1. DOXAZOSIN MESYLATE SANDOZ [Suspect]
     Indication: NEPHROLITHIASIS
     Dosage: 4 MG, QD
     Route: 048
     Dates: start: 20130505, end: 20130506
  2. LOSARTAN POTASSIUM [Concomitant]
     Indication: BLOOD PRESSURE INCREASED
     Dosage: 50 MG, QD
     Route: 048

REACTIONS (4)
  - Suffocation feeling [Recovered/Resolved]
  - Feeling abnormal [Recovered/Resolved]
  - Haematemesis [Recovered/Resolved]
  - Chromaturia [Recovered/Resolved]
